FAERS Safety Report 21936523 (Version 2)
Quarter: 2023Q1

REPORT INFORMATION
  Report Type: Spontaneous
  Country: MX (occurrence: MX)
  Receive Date: 20230201
  Receipt Date: 20230223
  Transmission Date: 20230418
  Serious: Yes (Disabling, Other)
  Sender: FDA-Public Use
  Company Number: MX-EXELIXIS-CABO-23060274

PATIENT
  Age: 61 Year
  Sex: Male

DRUGS (1)
  1. CABOMETYX [Suspect]
     Active Substance: CABOZANTINIB S-MALATE
     Indication: Clear cell renal cell carcinoma
     Dosage: 60 MG, QD
     Route: 048
     Dates: start: 202209

REACTIONS (7)
  - Myalgia [Recovering/Resolving]
  - Arthralgia [Recovering/Resolving]
  - Dysgeusia [Recovering/Resolving]
  - Fatigue [Unknown]
  - Hyperphagia [Recovering/Resolving]
  - Somnolence [Recovering/Resolving]
  - Dry mouth [Recovering/Resolving]

NARRATIVE: CASE EVENT DATE: 20221001
